FAERS Safety Report 4568048-4 (Version None)
Quarter: 2005Q1

REPORT INFORMATION
  Report Type: 
  Country: None (occurrence: None)
  Receive Date: 20050202
  Receipt Date: 20050106
  Transmission Date: 20050727
  Serious: Yes (Other)
  Sender: FDA-Public Use
  Company Number: US-AMGEN-US107552

PATIENT
  Sex: Male
  Weight: 107.6 kg

DRUGS (4)
  1. EPOGEN [Suspect]
     Indication: ANAEMIA
     Route: 058
     Dates: start: 20011207, end: 20031230
  2. ARANESP [Suspect]
     Indication: MYELODYSPLASTIC SYNDROME
     Route: 058
     Dates: start: 20031230
  3. GLIPIZIDE [Concomitant]
     Dates: start: 20020907
  4. DEXTRIFERRON [Concomitant]
     Dates: start: 20031230

REACTIONS (3)
  - BONE MARROW DEPRESSION [None]
  - DRUG INEFFECTIVE [None]
  - MYELODYSPLASTIC SYNDROME [None]
